FAERS Safety Report 7478879-9 (Version None)
Quarter: 2011Q2

REPORT INFORMATION
  Report Type: 
  Country: None (occurrence: None)
  Receive Date: 20110513
  Receipt Date: 20110505
  Transmission Date: 20111010
  Serious: Yes (Other)
  Sender: FDA-Public Use
  Company Number: US-SHIRE-ALL1-2011-01373

PATIENT
  Age: 2 Year
  Sex: Male

DRUGS (2)
  1. ELAPRASE [Suspect]
     Indication: MUCOPOLYSACCHARIDOSIS II
     Dosage: 12 MG, UNKNOWN
     Route: 041
     Dates: end: 20110401
  2. ELAPRASE [Suspect]
     Dosage: 6 MG, UNKNOWN
     Route: 041
     Dates: start: 20110101

REACTIONS (6)
  - GENERALISED ERYTHEMA [None]
  - LIP SWELLING [None]
  - WHEEZING [None]
  - FLUSHING [None]
  - INFUSION RELATED REACTION [None]
  - URTICARIA [None]
